FAERS Safety Report 21444975 (Version 3)
Quarter: 2022Q4

REPORT INFORMATION
  Report Type: Report from Study
  Country: CA (occurrence: CA)
  Receive Date: 20221012
  Receipt Date: 20221213
  Transmission Date: 20230113
  Serious: Yes (Other)
  Sender: FDA-Public Use
  Company Number: CA-BAYER-2022A138013

PATIENT

DRUGS (1)
  1. EYLEA [Suspect]
     Active Substance: AFLIBERCEPT
     Indication: Product used for unknown indication
     Dosage: UNK,SOLUTION FOR INJECTION, (STRENGTH:40MG/ML)
     Route: 031
     Dates: start: 20191025

REACTIONS (1)
  - Angioedema [Not Recovered/Not Resolved]
